FAERS Safety Report 9689546 (Version 2)
Quarter: 2013Q4

REPORT INFORMATION
  Report Type: Report from Study
  Country: CN (occurrence: CN)
  Receive Date: 20131115
  Receipt Date: 20131204
  Transmission Date: 20140711
  Serious: Yes (Hospitalization)
  Sender: FDA-Public Use
  Company Number: CN-AMGEN-CHNCT2013079703

PATIENT
  Age: 56 Year
  Sex: Female

DRUGS (5)
  1. DARBEPOETIN ALFA [Suspect]
     Indication: NEPHROGENIC ANAEMIA
     Dosage: 30 IU, QWK
     Route: 042
     Dates: start: 20130909, end: 20131105
  2. EPOGEN [Suspect]
     Indication: NEPHROGENIC ANAEMIA
     Dosage: 1500 IU, QWK
     Route: 042
     Dates: start: 20130715, end: 20130909
  3. NORVASC [Concomitant]
     Dosage: 5 MG, QD
     Dates: start: 2009
  4. BETALOC                            /00376902/ [Concomitant]
     Dosage: 12.5 MG, BID
     Route: 065
     Dates: start: 2009
  5. CARVEDILOL [Concomitant]
     Dosage: 12.5 MG, QN
     Route: 065

REACTIONS (2)
  - Hypertension [Recovering/Resolving]
  - Renal failure chronic [Unknown]
